FAERS Safety Report 6634864-8 (Version None)
Quarter: 2010Q1

REPORT INFORMATION
  Report Type: 
  Country: None (occurrence: None)
  Receive Date: 20100315
  Receipt Date: 20100303
  Transmission Date: 20100710
  Serious: Yes (Hospitalization)
  Sender: FDA-Public Use
  Company Number: IT-PFIZER INC-2010013513

PATIENT
  Age: 27 Year
  Sex: Female

DRUGS (2)
  1. RIBOTREX [Suspect]
     Indication: PHARYNGOTONSILLITIS
     Dosage: 1 DF, 1X/DAY
     Route: 048
     Dates: start: 20081105, end: 20081108
  2. OKI [Suspect]
     Indication: PHARYNGOTONSILLITIS
     Dosage: 1 DF, 1X/DAY
     Route: 048
     Dates: start: 20081105, end: 20081108

REACTIONS (3)
  - ERYTHEMA [None]
  - FOLLICULITIS [None]
  - PRURITUS [None]
